FAERS Safety Report 5976131-1 (Version None)
Quarter: 2008Q4

REPORT INFORMATION
  Report Type: 
  Country: None (occurrence: None)
  Receive Date: 20081202
  Receipt Date: 20080425
  Transmission Date: 20090506
  Serious: Yes (Other)
  Sender: FDA-Public Use
  Company Number: US-AMGEN-QUU275270

PATIENT
  Sex: Male
  Weight: 84 kg

DRUGS (1)
  1. ENBREL [Suspect]
     Indication: PSORIASIS
     Route: 058
     Dates: start: 20050701, end: 20080301

REACTIONS (3)
  - BLOOD IRON DECREASED [None]
  - METASTATIC RENAL CELL CARCINOMA [None]
  - TINEA INFECTION [None]
